FAERS Safety Report 19886940 (Version 3)
Quarter: 2022Q1

REPORT INFORMATION
  Report Type: Report from Study
  Country: US (occurrence: US)
  Receive Date: 20210927
  Receipt Date: 20220124
  Transmission Date: 20220423
  Serious: Yes (Other)
  Sender: FDA-Public Use
  Company Number: US-PFIZER INC-2021224835

PATIENT
  Age: 52 Year
  Sex: Male

DRUGS (3)
  1. LYRICA [Suspect]
     Active Substance: PREGABALIN
     Indication: Neuralgia
     Dosage: 150 MG, 2X/DAY
  2. LYRICA [Suspect]
     Active Substance: PREGABALIN
     Indication: Back pain
  3. LYRICA [Suspect]
     Active Substance: PREGABALIN
     Indication: Sciatica

REACTIONS (3)
  - Serotonin syndrome [Unknown]
  - Tonic clonic movements [Unknown]
  - Pain [Unknown]
